FAERS Safety Report 13442610 (Version 1)
Quarter: 2017Q2

REPORT INFORMATION
  Report Type: Spontaneous
  Country: US (occurrence: US)
  Receive Date: 20170413
  Receipt Date: 20170413
  Transmission Date: 20170830
  Serious: Yes (Hospitalization)
  Sender: FDA-Public Use
  Company Number: None

PATIENT
  Age: 61 Year
  Sex: Male
  Weight: 85 kg

DRUGS (3)
  1. DEXAMETHASONE. [Suspect]
     Active Substance: DEXAMETHASONE
     Dates: end: 20170316
  2. LENALIDOMIDE (CC-5013) [Suspect]
     Active Substance: LENALIDOMIDE
     Dates: end: 20170308
  3. VELCADE [Suspect]
     Active Substance: BORTEZOMIB
     Dates: end: 20170306

REACTIONS (6)
  - Paraesthesia [None]
  - Muscular weakness [None]
  - Facial paralysis [None]
  - Headache [None]
  - Hypoaesthesia [None]
  - Speech disorder [None]

NARRATIVE: CASE EVENT DATE: 20170402
